FAERS Safety Report 5188489-4 (Version None)
Quarter: 2006Q4

REPORT INFORMATION
  Report Type: 
  Country: None (occurrence: None)
  Receive Date: 20061214
  Receipt Date: 20061204
  Transmission Date: 20070319
  Serious: Yes (Hospitalization)
  Sender: FDA-Public Use
  Company Number: 2006BI017510

PATIENT
  Age: 56 Year
  Sex: Female
  Weight: 56.6996 kg

DRUGS (5)
  1. AVONEX [Suspect]
     Indication: MULTIPLE SCLEROSIS
     Dosage: 30 UG;QW;IM
     Route: 030
     Dates: start: 19991101, end: 20030101
  2. AVONEX [Suspect]
     Indication: MULTIPLE SCLEROSIS
     Dosage: 30 UG;QW;IM
     Route: 030
     Dates: start: 20030101, end: 20061027
  3. ACTONEL [Concomitant]
  4. BACLOFEN [Concomitant]
  5. ELAVIL [Concomitant]

REACTIONS (8)
  - CHEST DISCOMFORT [None]
  - CHEST PAIN [None]
  - FATIGUE [None]
  - INTRA-ABDOMINAL HAEMORRHAGE [None]
  - MUSCULOSKELETAL PAIN [None]
  - NECK PAIN [None]
  - PAIN IN JAW [None]
  - PALPITATIONS [None]
